FAERS Safety Report 8549561-1 (Version None)
Quarter: 2012Q3

REPORT INFORMATION
  Report Type: 
  Country: None (occurrence: None)
  Receive Date: 20120730
  Receipt Date: 20120723
  Transmission Date: 20120928
  Serious: Yes (Hospitalization, Other)
  Sender: FDA-Public Use
  Company Number: SE-PFIZER INC-2012144534

PATIENT
  Age: 66 Year
  Sex: Female

DRUGS (1)
  1. CHLOROMYCETIN [Suspect]
     Indication: ANTIBIOTIC PROPHYLAXIS
     Dosage: 1X4-5
     Route: 047
     Dates: start: 20100812, end: 20120227

REACTIONS (7)
  - EYE INFLAMMATION [None]
  - SYMBLEPHARON [None]
  - FUNGAL INFECTION [None]
  - CATARACT [None]
  - HYPERSENSITIVITY [None]
  - CONJUNCTIVAL DISORDER [None]
  - EYELID PTOSIS [None]
